FAERS Safety Report 5124795-7 (Version None)
Quarter: 2006Q4

REPORT INFORMATION
  Report Type: 
  Country: None (occurrence: None)
  Receive Date: 20061011
  Receipt Date: 20060928
  Transmission Date: 20070319
  Serious: Yes (Hospitalization, Other)
  Sender: FDA-Public Use
  Company Number: PHRM2006FR02694

PATIENT
  Age: 25 Year
  Sex: Female
  Weight: 48 kg

DRUGS (6)
  1. MYFORTIC [Suspect]
     Indication: HEART TRANSPLANT
     Dosage: 360 MG, BID
     Route: 048
  2. NEORAL [Suspect]
     Indication: HEART TRANSPLANT
     Dosage: 100 MG DAILY
     Route: 048
  3. CORTANCYL [Concomitant]
     Indication: HEART TRANSPLANT
     Dosage: 7.5 MG PER DAY
     Route: 048
  4. CARDENSIEL [Concomitant]
     Indication: CARDIOMYOPATHY NEONATAL
     Dosage: 1.25 MG, BID
     Route: 048
  5. PREVISCAN [Concomitant]
     Route: 048
  6. TRIATEC [Concomitant]
     Indication: CARDIOMYOPATHY NEONATAL
     Dosage: 5 MG PER DAY
     Route: 048

REACTIONS (21)
  - ABDOMINAL PAIN [None]
  - ABDOMINAL PAIN UPPER [None]
  - BLOOD AMYLASE INCREASED [None]
  - BLOOD CREATININE INCREASED [None]
  - BLOOD LACTATE DEHYDROGENASE INCREASED [None]
  - CHEST PAIN [None]
  - DIARRHOEA [None]
  - DUODENITIS [None]
  - EFFUSION [None]
  - GAMMA-GLUTAMYLTRANSFERASE INCREASED [None]
  - HYPOVENTILATION [None]
  - INTERNATIONAL NORMALISED RATIO INCREASED [None]
  - LIPASE INCREASED [None]
  - LOSS OF CONSCIOUSNESS [None]
  - MALAISE [None]
  - PANCREATITIS [None]
  - PELVIC FLUID COLLECTION [None]
  - PERITONEAL EFFUSION [None]
  - PLEURAL EFFUSION [None]
  - PROTHROMBIN LEVEL DECREASED [None]
  - RENAL FAILURE CHRONIC [None]
